FAERS Safety Report 5692512-8 (Version None)
Quarter: 2008Q2

REPORT INFORMATION
  Report Type: 
  Country: None (occurrence: None)
  Receive Date: 20080402
  Receipt Date: 20080324
  Transmission Date: 20081010
  Serious: Yes (Hospitalization, Other)
  Sender: FDA-Public Use
  Company Number: US-ABBOTT-08P-163-0443868-00

PATIENT
  Sex: Female
  Weight: 61.744 kg

DRUGS (6)
  1. HUMIRA [Suspect]
     Indication: RHEUMATOID ARTHRITIS
     Route: 058
     Dates: start: 20070901, end: 20071201
  2. HUMIRA [Suspect]
     Route: 058
     Dates: start: 20060101, end: 20070901
  3. HUMIRA [Suspect]
     Dosage: PEN THERAPY
     Route: 058
     Dates: start: 20071201, end: 20080201
  4. HUMIRA [Suspect]
  5. LISINOPRIL [Concomitant]
     Indication: HYPERTENSION
     Route: 048
  6. IRON [Concomitant]
     Indication: ANAEMIA
     Route: 048

REACTIONS (5)
  - ANAEMIA [None]
  - ARTHRALGIA [None]
  - GASTRIC HAEMORRHAGE [None]
  - STOMACH MASS [None]
  - UNEVALUABLE EVENT [None]
